FAERS Safety Report 23797035 (Version 1)
Quarter: 2024Q2

REPORT INFORMATION
  Report Type: Spontaneous
  Country: GB (occurrence: GB)
  Receive Date: 20240430
  Receipt Date: 20240430
  Transmission Date: 20240715
  Serious: Yes (Other)
  Sender: FDA-Public Use
  Company Number: GB-JNJFOC-20240406840

PATIENT
  Age: 66 Year
  Sex: Male

DRUGS (4)
  1. AMLODIPINE [Suspect]
     Active Substance: AMLODIPINE BESYLATE
     Indication: Product used for unknown indication
     Dosage: 5 MILLIGRAM
     Route: 065
  2. STELARA [Suspect]
     Active Substance: USTEKINUMAB
     Indication: Crohn^s disease
     Dosage: UNK
     Route: 058
  3. STELARA [Suspect]
     Active Substance: USTEKINUMAB
     Dosage: UNK
     Route: 030
     Dates: start: 20240103
  4. STELARA [Suspect]
     Active Substance: USTEKINUMAB
     Indication: Crohn^s disease
     Dosage: UNK
     Route: 040
     Dates: start: 20231108

REACTIONS (10)
  - Sciatica [Not Recovered/Not Resolved]
  - Pruritus [Not Recovered/Not Resolved]
  - Liver disorder [Unknown]
  - Joint swelling [Recovered/Resolved]
  - Malaise [Unknown]
  - Fatigue [Unknown]
  - Sinusitis [Unknown]
  - Gastrointestinal stoma output increased [Unknown]
  - Mood swings [Unknown]
  - Off label use [Unknown]
